FAERS Safety Report 18176947 (Version 2)
Quarter: 2020Q3

REPORT INFORMATION
  Report Type: Spontaneous
  Country: US (occurrence: US)
  Receive Date: 20200821
  Receipt Date: 20200922
  Transmission Date: 20201103
  Serious: No
  Sender: FDA-Public Use
  Company Number: US-BAUSCH-BL-2020-022587

PATIENT
  Age: 55 Year
  Sex: Female
  Weight: 41.77 kg

DRUGS (2)
  1. LACRISERT [Suspect]
     Active Substance: HYDROXYPROPYL CELLULOSE
     Indication: DRY EYE
     Dosage: STARTED USING FOR AT LEAST 5 YEARS
     Route: 047
     Dates: end: 202001
  2. REFRESH PLUS [Suspect]
     Active Substance: CARBOXYMETHYLCELLULOSE SODIUM
     Indication: DRY EYE
     Dosage: AS NEEDED, STARTED USING FOR AT LEAST 5 YEARS
     Route: 047

REACTIONS (4)
  - Therapy interrupted [Unknown]
  - Product supply issue [Unknown]
  - Lacrimation decreased [Unknown]
  - Dry eye [Unknown]

NARRATIVE: CASE EVENT DATE: 2020
